FAERS Safety Report 8613690 (Version 2)
Quarter: 2014Q3

REPORT INFORMATION
  Report Type: Spontaneous
  Country: US (occurrence: US)
  Receive Date: 20120614
  Receipt Date: 20140822
  Transmission Date: 20150326
  Serious: Yes (Death)
  Sender: FDA-Public Use
  Company Number: US-AMGEN-USASP2012036375

PATIENT
  Age: 60 Year
  Sex: Male

DRUGS (15)
  1. FOLINIC ACID [Concomitant]
     Active Substance: LEUCOVORIN
     Indication: COLORECTAL CANCER STAGE IV
     Dosage: UNK
  2. PHENERGAN [Concomitant]
     Active Substance: PROMETHAZINE HYDROCHLORIDE
     Dosage: UNK
  3. VECTIBIX [Suspect]
     Active Substance: PANITUMUMAB
     Indication: COLORECTAL CANCER STAGE IV
     Dosage: 6 MG/KG, EVERY 2 WEEKS
     Route: 042
     Dates: start: 20110726, end: 20120227
  4. AVASTIN [Concomitant]
     Active Substance: BEVACIZUMAB
     Indication: COLORECTAL CANCER STAGE IV
     Dosage: UNK
  5. FLOMAX [Concomitant]
     Active Substance: TAMSULOSIN HYDROCHLORIDE
     Dosage: UNK
  6. ZOFRAN                             /00955301/ [Concomitant]
     Active Substance: ONDANSETRON HYDROCHLORIDE
     Dosage: UNK
  7. ZINC OXIDE. [Concomitant]
     Active Substance: ZINC OXIDE
     Dosage: UNK
     Route: 061
  8. DECADRON [Concomitant]
     Active Substance: DEXAMETHASONE
     Dosage: WITH CHEMOTHERAPY
  9. 5-FU                               /00098801/ [Concomitant]
     Active Substance: FLUOROURACIL
     Indication: COLORECTAL CANCER STAGE IV
     Dosage: UNK
  10. FERROUS SULFATE [Concomitant]
     Active Substance: FERROUS SULFATE\FERROUS SULFATE, DRIED
     Dosage: UNK
  11. OXALIPLATIN. [Concomitant]
     Active Substance: OXALIPLATIN
     Indication: COLORECTAL CANCER STAGE IV
     Dosage: UNK
  12. BENADRYL [Concomitant]
     Active Substance: DIPHENHYDRAMINE HYDROCHLORIDE
     Dosage: UNK
  13. LORCET [Concomitant]
     Active Substance: ACETAMINOPHEN\HYDROCODONE BITARTRATE
     Dosage: UNK
  14. DULCOLAX (BISACODYL) [Concomitant]
     Active Substance: BISACODYL
     Dosage: UNK
  15. MSIR [Concomitant]
     Active Substance: MORPHINE SULFATE
     Dosage: UNK UNK, AS NECESSARY

REACTIONS (9)
  - Colorectal cancer stage IV [Fatal]
  - Herpes zoster [Unknown]
  - Blister [Unknown]
  - Rash vesicular [Unknown]
  - Dehydration [Unknown]
  - Leukocytosis [Unknown]
  - Constipation [Unknown]
  - Haematuria [Unknown]
  - Pruritus [Unknown]
